FAERS Safety Report 20579159 (Version 1)
Quarter: 2022Q1

REPORT INFORMATION
  Report Type: Spontaneous
  Country: US (occurrence: None)
  Receive Date: 20220310
  Receipt Date: 20220310
  Transmission Date: 20220424
  Serious: Yes (Hospitalization)
  Sender: FDA-Public Use
  Company Number: None

PATIENT
  Age: 61 Year
  Sex: Male

DRUGS (1)
  1. ROSUVASTATIN CALCIUM [Suspect]
     Active Substance: ROSUVASTATIN CALCIUM
     Indication: Hyperlipidaemia
     Dosage: FREQUENCY : AS DIRECTED;?
     Route: 048
     Dates: start: 20191221, end: 20200516

REACTIONS (4)
  - Myalgia [None]
  - Arthralgia [None]
  - Rash [None]
  - Rhabdomyolysis [None]

NARRATIVE: CASE EVENT DATE: 20200515
